FAERS Safety Report 7233080-9 (Version None)
Quarter: 2011Q1

REPORT INFORMATION
  Report Type: 
  Country: None (occurrence: None)
  Receive Date: 20110106
  Receipt Date: 20101227
  Transmission Date: 20110831
  Serious: Yes (Hospitalization)
  Sender: FDA-Public Use
  Company Number: TAJPN-10-0773

PATIENT
  Age: 56 Year
  Sex: Female
  Weight: 42 kg

DRUGS (2)
  1. ABRAXANE [Suspect]
     Indication: BREAST CANCER METASTATIC
     Dosage: (235 MG)
     Dates: start: 20101105, end: 20101105
  2. ZOMETA [Concomitant]

REACTIONS (1)
  - DECREASED APPETITE [None]
